APPROVED DRUG PRODUCT: ANESTACON
Active Ingredient: LIDOCAINE HYDROCHLORIDE
Strength: 2%
Dosage Form/Route: JELLY;TOPICAL
Application: A080429 | Product #001
Applicant: BIONPHARMA INC
Approved: Approved Prior to Jan 1, 1982 | RLD: No | RS: No | Type: DISCN